FAERS Safety Report 16584966 (Version 12)
Quarter: 2021Q3

REPORT INFORMATION
  Report Type: Spontaneous
  Country: US (occurrence: US)
  Receive Date: 20190717
  Receipt Date: 20210813
  Transmission Date: 20211014
  Serious: Yes (Disabling, Other)
  Sender: FDA-Public Use
  Company Number: US-PFIZER INC-2019297181

PATIENT
  Age: 79 Year
  Sex: Female
  Weight: 59 kg

DRUGS (12)
  1. LYRICA [Suspect]
     Active Substance: PREGABALIN
     Indication: POLYNEUROPATHY
     Dosage: 100 MG, DAILY (2 CAPSULES OF 50MG AT BEDTIME)
     Route: 048
     Dates: start: 20180928, end: 201809
  2. LYRICA [Suspect]
     Active Substance: PREGABALIN
     Indication: IMMUNE SYSTEM DISORDER
     Dosage: 50 MG, THRICE A DAY
     Dates: start: 20190104
  3. LYRICA [Suspect]
     Active Substance: PREGABALIN
     Indication: AUTOIMMUNE DISORDER
     Dosage: 150 MG ONCE A DAY
     Route: 048
     Dates: start: 20190104
  4. LYRICA [Suspect]
     Active Substance: PREGABALIN
     Indication: NEUROPATHY PERIPHERAL
     Dosage: 150 MG, DAILY (3 CAPSULES 150 MG TOTAL, EVERY BEDTIME
     Route: 048
     Dates: start: 20200729
  5. LYRICA [Suspect]
     Active Substance: PREGABALIN
     Indication: NEURALGIA
  6. PREDNISONE. [Concomitant]
     Active Substance: PREDNISONE
     Dosage: 5 MG, ONCE A DAY
     Dates: start: 201302
  7. LYRICA [Suspect]
     Active Substance: PREGABALIN
     Indication: MYALGIA
     Dosage: 150 MG, ONCE A DAY (50MG, 3 CAPSULES AT NIGHT)
     Route: 048
     Dates: start: 2018
  8. MYCOPHENOLATE [Concomitant]
     Active Substance: MYCOPHENOLIC ACID
     Indication: IMMUNE SYSTEM DISORDER
     Dosage: 1000 MG, TWICE A DAY (TWICE A DAY, MORNING AND NIGHT)
     Dates: start: 20180406
  9. NORTRIPTYLINE [Concomitant]
     Active Substance: NORTRIPTYLINE
     Indication: SLEEP DISORDER
     Dosage: 10 MG, ONCE A DAY
     Dates: start: 20190301
  10. LYRICA [Suspect]
     Active Substance: PREGABALIN
     Indication: SCIATIC NERVE NEUROPATHY
     Dosage: 50 MG, TWICE A DAY
     Dates: start: 201809
  11. PREDNISONE. [Concomitant]
     Active Substance: PREDNISONE
     Indication: IMMUNE SYSTEM DISORDER
     Dosage: 6 MG
  12. ENTECAVIR. [Concomitant]
     Active Substance: ENTECAVIR
     Indication: VIRAL HEPATITIS CARRIER
     Dosage: 0.5 MG, ONCE A DAY
     Dates: start: 20170412

REACTIONS (11)
  - Road traffic accident [Unknown]
  - Foot fracture [Not Recovered/Not Resolved]
  - Mobility decreased [Unknown]
  - Stress [Unknown]
  - Back pain [Unknown]
  - Neck pain [Unknown]
  - Pneumonia [Unknown]
  - Dizziness [Unknown]
  - Chest pain [Unknown]
  - Gait disturbance [Unknown]
  - Pain in extremity [Unknown]

NARRATIVE: CASE EVENT DATE: 20190624
